FAERS Safety Report 4585652-8 (Version None)
Quarter: 2005Q1

REPORT INFORMATION
  Report Type: 
  Country: None (occurrence: None)
  Receive Date: 20050217
  Receipt Date: 20050207
  Transmission Date: 20050727
  Serious: Yes (Death)
  Sender: FDA-Public Use
  Company Number: US-JNJFOC-20050202628

PATIENT
  Sex: Female

DRUGS (1)
  1. MYLANTA ANTACID/ANTI-GAS [Suspect]
     Indication: DRUG USE FOR UNKNOWN INDICATION
     Route: 049

REACTIONS (5)
  - ASTHENIA [None]
  - CARDIAC DISORDER [None]
  - CIRCULATORY COLLAPSE [None]
  - HYPOVENTILATION [None]
  - MEDICATION ERROR [None]
